FAERS Safety Report 5191390-3 (Version None)
Quarter: 2006Q4

REPORT INFORMATION
  Report Type: 
  Country: None (occurrence: None)
  Receive Date: 20061226
  Receipt Date: 20030129
  Transmission Date: 20070319
  Serious: Yes (Hospitalization)
  Sender: FDA-Public Use
  Company Number: FR-MERCK-0302USA00028

PATIENT
  Age: 67 Year
  Sex: Female

DRUGS (2)
  1. MODURETIC 5-50 [Suspect]
     Route: 048
  2. BISOPROLOL FUMARATE [Suspect]
     Route: 048

REACTIONS (1)
  - SJOGREN'S SYNDROME [None]
